FAERS Safety Report 4889475-1 (Version None)
Quarter: 2006Q1

REPORT INFORMATION
  Report Type: 
  Country: None (occurrence: None)
  Receive Date: 20060120
  Receipt Date: 20060109
  Transmission Date: 20060701
  Serious: Yes (Hospitalization)
  Sender: FDA-Public Use
  Company Number: 26449

PATIENT
  Age: 75 Year
  Sex: Female

DRUGS (5)
  1. FLECAINIDE ACETATE [Suspect]
     Dosage: ORAL
     Route: 048
  2. NOOTROPYL             (PIRACETAM) [Suspect]
  3. LAMICTAL [Suspect]
  4. APROVEL (IRBESARTAN) [Suspect]
  5. ASASANTINE                      (DIPYRIDAMOLE, ACETYLSALICYLATE ACID) [Suspect]

REACTIONS (10)
  - ANAEMIA [None]
  - CONJUNCTIVITIS [None]
  - EOSINOPHIL COUNT INCREASED [None]
  - HYPERTHERMIA [None]
  - OEDEMA [None]
  - RASH ERYTHEMATOUS [None]
  - RENAL FAILURE [None]
  - SKIN EXFOLIATION [None]
  - THROMBOCYTOPENIA [None]
  - WHITE BLOOD CELL COUNT INCREASED [None]
